FAERS Safety Report 5339894-4 (Version None)
Quarter: 2007Q2

REPORT INFORMATION
  Report Type: 
  Country: None (occurrence: None)
  Receive Date: 20070529
  Receipt Date: 20070516
  Transmission Date: 20071010
  Serious: Yes (Life-Threatening, Hospitalization)
  Sender: FDA-Public Use
  Company Number: CLOF-10507

PATIENT
  Age: 19 Year
  Sex: Male
  Weight: 74.2 kg

DRUGS (31)
  1. CLOFARABINE, MFR: GENZYME [Suspect]
     Indication: ACUTE LYMPHOCYTIC LEUKAEMIA
     Dosage: 78 MG QD X 5 IV
     Route: 042
     Dates: start: 20070411, end: 20070415
  2. ETOPOSIDE [Suspect]
     Indication: ACUTE LYMPHOCYTIC LEUKAEMIA
     Dosage: 196 MG QD X 5 IV
     Route: 042
     Dates: start: 20070411, end: 20070415
  3. CYCLOPHOSPHAMIDE [Suspect]
     Indication: ACUTE LYMPHOCYTIC LEUKAEMIA
     Dosage: 860 MG QD X 5 IV
     Route: 042
     Dates: start: 20070411, end: 20070415
  4. ALLOPURINOL [Concomitant]
  5. AMPHETAMINE AND DEXTROAMPHETAMINE SALTS [Concomitant]
  6. DOCUSATE [Concomitant]
  7. ESCITALOPRAM OXALATE [Concomitant]
  8. LABETALOL HCL [Concomitant]
  9. RANITIDINE [Concomitant]
  10. MAGNESIUM HYDROXIDE TAB [Concomitant]
  11. LANSOPRAZOLE [Concomitant]
  12. MAGNESIUM SULFATE [Concomitant]
  13. MESNA [Concomitant]
  14. SCOPOLAMINE [Concomitant]
  15. DIPHENHYDRAMINE HCL [Concomitant]
  16. METOCLOPRAMIDE [Concomitant]
  17. POLYETHYLOENE GLYCOL [Concomitant]
  18. ZOLPIDEM [Concomitant]
  19. AMLODIPINE [Concomitant]
  20. DAPSONE [Concomitant]
  21. FILGRASTIM [Concomitant]
  22. FLUCONAZOLE [Concomitant]
  23. HEPARIN [Concomitant]
  24. HYDROMORPHONE HCL [Concomitant]
  25. MULTIVITMAIN WITH MINERALS [Concomitant]
  26. ONDANSETRON [Concomitant]
  27. OXYCODONE HCL [Concomitant]
  28. ACYCLOVIR [Concomitant]
  29. CEFTAZIDIME [Concomitant]
  30. SELENIOUS ACID [Concomitant]
  31. URSODIOL [Concomitant]

REACTIONS (34)
  - ALANINE AMINOTRANSFERASE INCREASED [None]
  - ASPARTATE AMINOTRANSFERASE INCREASED [None]
  - BACTERIAL INFECTION [None]
  - BLOOD ALKALINE PHOSPHATASE INCREASED [None]
  - BLOOD CULTURE POSITIVE [None]
  - BONE MARROW FAILURE [None]
  - BRONCHOPULMONARY ASPERGILLOSIS [None]
  - CHOLELITHIASIS [None]
  - COAGULOPATHY [None]
  - ENCEPHALOPATHY [None]
  - FUNGAL INFECTION [None]
  - HAEMATOCHEZIA [None]
  - HYDROCEPHALUS [None]
  - HYPERBILIRUBINAEMIA [None]
  - HYPOXIA [None]
  - INFECTION [None]
  - INTRACRANIAL PRESSURE INCREASED [None]
  - LOCALISED INFECTION [None]
  - LUNG INFECTION [None]
  - LYMPHADENOPATHY [None]
  - MENINGITIS BACTERIAL [None]
  - MENTAL STATUS CHANGES [None]
  - NEUTROPENIA [None]
  - NODULE [None]
  - ORAL DISCHARGE [None]
  - PLATELET COUNT DECREASED [None]
  - PLEURAL EFFUSION [None]
  - PNEUMONIA [None]
  - POLYDIPSIA [None]
  - PULMONARY OEDEMA [None]
  - RESPIRATORY DISTRESS [None]
  - RHINORRHOEA [None]
  - STAPHYLOCOCCAL INFECTION [None]
  - WHITE BLOOD CELL COUNT DECREASED [None]
